FAERS Safety Report 6285992-0 (Version None)
Quarter: 2009Q3

REPORT INFORMATION
  Report Type: 
  Country: None (occurrence: None)
  Receive Date: 20090728
  Receipt Date: 20090714
  Transmission Date: 20100115
  Serious: Yes (Other)
  Sender: FDA-Public Use
  Company Number: CN-JNJFOC-20090708243

PATIENT
  Sex: Male
  Weight: 2.9 kg

DRUGS (2)
  1. GYNO DAKTARIN [Suspect]
  2. GYNO DAKTARIN [Suspect]
     Indication: DRUG EXPOSURE DURING PREGNANCY
     Dosage: EVERY NIGHT

REACTIONS (1)
  - PREMATURE BABY [None]
